FAERS Safety Report 15167372 (Version 2)
Quarter: 2018Q3

REPORT INFORMATION
  Report Type: Spontaneous
  Country: US (occurrence: US)
  Receive Date: 20180719
  Receipt Date: 20180828
  Transmission Date: 20181010
  Serious: Yes (Life-Threatening, Other)
  Sender: FDA-Public Use
  Company Number: US-PFIZER INC-2018289796

PATIENT
  Age: 7 Year
  Sex: Female
  Weight: 53.7 kg

DRUGS (4)
  1. TIROSINT [Concomitant]
     Active Substance: LEVOTHYROXINE SODIUM
     Indication: HYPOTHYROIDISM
     Dosage: 100 UG, DAILY (100 MCG TABLET BY MOUTH EVERYDAY)
     Route: 048
     Dates: start: 201801
  2. GENOTROPIN MQ [Suspect]
     Active Substance: SOMATROPIN
     Indication: GROWTH HORMONE DEFICIENCY
     Dosage: 1.4 MG, DAILY (1.4 MG INJECTION EVERYDAY AT NIGHT)
     Dates: start: 20180621, end: 20180622
  3. GENOTROPIN MQ [Suspect]
     Active Substance: SOMATROPIN
     Dosage: 1.4 MG, DAILY (1.4 MG INJECTION EVERYDAY AT NIGHT)
     Dates: start: 20180628, end: 2018
  4. HYDROCORTISONE. [Concomitant]
     Active Substance: HYDROCORTISONE
     Indication: STEROID THERAPY
     Dosage: 5 MG, 3X/DAY (5 MG TABLET BY MOUTH THREE TIMES A DAY ORALLY)
     Route: 048

REACTIONS (6)
  - Cortisol decreased [Unknown]
  - Adrenal insufficiency [Unknown]
  - Drug hypersensitivity [Unknown]
  - Epistaxis [Recovered/Resolved]
  - Weight increased [Unknown]
  - Ocular hyperaemia [Unknown]

NARRATIVE: CASE EVENT DATE: 20180622
